FAERS Safety Report 8086131-6 (Version None)
Quarter: 2012Q1

REPORT INFORMATION
  Report Type: 
  Country: None (occurrence: None)
  Receive Date: 20120128
  Receipt Date: 20110414
  Transmission Date: 20120608
  Serious: No
  Sender: FDA-Public Use
  Company Number: US-ABBOTT-11P-163-0719100-00

PATIENT
  Sex: Female
  Weight: 81.72 kg

DRUGS (3)
  1. UNKNOWN BIRTH CONTROL [Suspect]
     Indication: CONTRACEPTION
  2. CLOBEX [Concomitant]
     Indication: PSORIASIS
     Route: 061
  3. HUMIRA [Suspect]
     Indication: PSORIASIS
     Dates: start: 20100901

REACTIONS (5)
  - INJECTION SITE URTICARIA [None]
  - INJECTION SITE PAIN [None]
  - INJECTION SITE HAEMORRHAGE [None]
  - WEIGHT INCREASED [None]
  - INJECTION SITE HAEMATOMA [None]
